FAERS Safety Report 16204703 (Version 1)
Quarter: 2019Q2

REPORT INFORMATION
  Report Type: Spontaneous
  Country: ES (occurrence: ES)
  Receive Date: 20190416
  Receipt Date: 20190416
  Transmission Date: 20190711
  Serious: Yes (Hospitalization)
  Sender: FDA-Public Use
  Company Number: PHHY2019ES082294

PATIENT
  Age: 69 Year
  Sex: Female

DRUGS (9)
  1. TRAMADOL/PARACETAMOL [Concomitant]
     Active Substance: ACETAMINOPHEN\TRAMADOL
     Indication: PAIN
     Dosage: UNK
     Route: 065
     Dates: start: 20190115, end: 20190301
  2. VANCOMICINA [Suspect]
     Active Substance: VANCOMYCIN
     Indication: SEPTIC ARTHRITIS STAPHYLOCOCCAL
     Dosage: UNK
     Route: 042
     Dates: start: 20190114, end: 20190124
  3. BEMIPARINA SODICA [Concomitant]
     Indication: THROMBOSIS PROPHYLAXIS
     Dosage: UNK
     Route: 058
     Dates: start: 20190114, end: 20190217
  4. RIFAMPICIN [Suspect]
     Active Substance: RIFAMPIN
     Indication: SEPTIC ARTHRITIS STAPHYLOCOCCAL
     Dosage: UNK
     Route: 048
     Dates: start: 20190129, end: 20190218
  5. CLOXACILINA [Suspect]
     Active Substance: CLOXACILLIN
     Indication: SEPTIC ARTHRITIS STAPHYLOCOCCAL
     Dosage: UNK
     Route: 042
     Dates: start: 20190124, end: 20190215
  6. MEROPENEM. [Suspect]
     Active Substance: MEROPENEM
     Indication: SEPTIC ARTHRITIS STAPHYLOCOCCAL
     Dosage: UNK
     Route: 042
     Dates: start: 20190124, end: 20190218
  7. CEFTAZIDIMA [Suspect]
     Active Substance: CEFTAZIDIME
     Indication: SEPTIC ARTHRITIS STAPHYLOCOCCAL
     Dosage: UNK
     Route: 042
     Dates: start: 20190114, end: 20190124
  8. METAMIZOL [Suspect]
     Active Substance: METAMIZOLE SODIUM
     Indication: PAIN
     Dosage: UNK
     Route: 042
     Dates: start: 20190112, end: 20190219
  9. OMEPRAZOL [Suspect]
     Active Substance: OMEPRAZOLE
     Indication: PROPHYLAXIS AGAINST GASTROINTESTINAL ULCER
     Dosage: UNK
     Route: 042
     Dates: start: 20190112, end: 20190221

REACTIONS (1)
  - Drug reaction with eosinophilia and systemic symptoms [Recovered/Resolved]

NARRATIVE: CASE EVENT DATE: 20190211
